FAERS Safety Report 4810122-9 (Version None)
Quarter: 2005Q4

REPORT INFORMATION
  Report Type: 
  Country: None (occurrence: None)
  Receive Date: 20051024
  Receipt Date: 20051013
  Transmission Date: 20060501
  Serious: Yes (Death, Other)
  Sender: FDA-Public Use
  Company Number: 2005143040

PATIENT
  Age: 80 Year
  Sex: Male
  Weight: 75 kg

DRUGS (7)
  1. GABAPENTIN [Suspect]
     Indication: NEURALGIA
     Dosage: ORAL
     Route: 048
  2. TAMSULOSIN HCL [Suspect]
     Indication: ILL-DEFINED DISORDER
     Dosage: 400 MCG (400 MCG, 1 IN 1 D), ORAL
     Route: 048
  3. CLONAZEPAM [Concomitant]
  4. BISOPROLOL FUMARATE [Concomitant]
  5. GLLYCERYL TRINITRATE (GLYCERYL TRINITRATE) [Concomitant]
  6. TEMAZEPAM [Concomitant]
  7. AMITRIPTYLINE HCL [Concomitant]

REACTIONS (6)
  - ARTERIOSCLEROSIS CORONARY ARTERY [None]
  - CARDIAC FAILURE [None]
  - CARDIOMEGALY [None]
  - MYOCARDIAL ISCHAEMIA [None]
  - PLEURAL EFFUSION [None]
  - PULMONARY OEDEMA [None]
